FAERS Safety Report 7693192-2 (Version None)
Quarter: 2011Q3

REPORT INFORMATION
  Report Type: 
  Country: None (occurrence: None)
  Receive Date: 20110815
  Receipt Date: 20110704
  Transmission Date: 20111222
  Serious: Yes (Other)
  Sender: FDA-Public Use
  Company Number: GB-ACCORD-009657

PATIENT
  Age: 20 Year
  Sex: Male

DRUGS (3)
  1. MYCOPHENOLATE MOFETIL [Suspect]
     Indication: RENAL TRANSPLANT
     Dosage: 300.00-MG/M2-2.00 TIMES PER- 1.0DAYS
  2. PREDNISOLONE [Suspect]
     Indication: RENAL TRANSPLANT
     Dosage: 10.00MG
  3. TACROLIMUS [Suspect]
     Indication: RENAL TRANSPLANT
     Dosage: 300.00-MG/M2-2.00 TIMES PER-1.0 DAYS

REACTIONS (10)
  - DISEASE RECURRENCE [None]
  - NO THERAPEUTIC RESPONSE [None]
  - RENAL TRANSPLANT [None]
  - ANAEMIA [None]
  - COMPLICATIONS OF TRANSPLANTED KIDNEY [None]
  - SKIN PAPILLOMA [None]
  - TUBULOINTERSTITIAL NEPHRITIS [None]
  - UVEITIS [None]
  - CUSHINGOID [None]
  - RENAL FAILURE [None]
